FAERS Safety Report 4433614-3 (Version None)
Quarter: 2004Q3

REPORT INFORMATION
  Report Type: 
  Country: None (occurrence: None)
  Receive Date: 20040825
  Receipt Date: 20040825
  Transmission Date: 20050211
  Serious: No
  Sender: FDA-Public Use
  Company Number: None

PATIENT
  Age: 50 Year
  Sex: Female

DRUGS (5)
  1. AZATHIOPRINE [Suspect]
     Indication: COLITIS ULCERATIVE
     Dosage: 50 MG PO DAILY
     Route: 048
  2. ASACOL [Concomitant]
  3. PAXIL CR [Concomitant]
  4. PREMARIN [Concomitant]
  5. PROVERA [Concomitant]

REACTIONS (1)
  - PANCREATITIS [None]
